FAERS Safety Report 11681467 (Version 1)
Quarter: 2015Q4

REPORT INFORMATION
  Report Type: Spontaneous
  Country: US (occurrence: None)
  Receive Date: 20151028
  Receipt Date: 20151028
  Transmission Date: 20160304
  Serious: Yes (Other)
  Sender: FDA-Public Use
  Company Number: None

PATIENT
  Age: 71 Year
  Sex: Female
  Weight: 60.06 kg

DRUGS (25)
  1. NYSTOP [Concomitant]
     Active Substance: NYSTATIN
  2. ONDANSETRON ODT [Concomitant]
     Active Substance: ONDANSETRON
  3. SULFAMETHOXAZOLE-TMP [Concomitant]
     Active Substance: SULFAMETHOXAZOLE\TRIMETHOPRIM
  4. BENICAR [Concomitant]
     Active Substance: OLMESARTAN MEDOXOMIL
  5. AMLODIPINE-VALSARTAN [Concomitant]
     Active Substance: AMLODIPINE\VALSARTAN
  6. AMOXICILLIN. [Concomitant]
     Active Substance: AMOXICILLIN
  7. CEPHALEXIN. [Concomitant]
     Active Substance: CEPHALEXIN
  8. DOXYCYCLINE HYCLATE. [Concomitant]
     Active Substance: DOXYCYCLINE HYCLATE
  9. TYLENOL EXTREA STRENGHT [Concomitant]
  10. ATVORVASTATOM [Concomitant]
  11. FUROSEMIDE. [Concomitant]
     Active Substance: FUROSEMIDE
  12. MECLIZINE [Concomitant]
     Active Substance: MECLIZINE\MECLIZINE HYDROCHLORIDE
  13. OYST-CAL-D [Concomitant]
  14. VITAMIN D3 [Concomitant]
     Active Substance: CHOLECALCIFEROL
  15. EXFORGE [Concomitant]
     Active Substance: AMLODIPINE BESYLATE\VALSARTAN
  16. HYDROCODON-ACETAMINOPH [Concomitant]
  17. OXYCODON-ACTAMINOPHEN [Concomitant]
  18. ATORVASTATIN [Concomitant]
     Active Substance: ATORVASTATIN
  19. FAMCICLOVIR. [Concomitant]
     Active Substance: FAMCICLOVIR
  20. NYSTATIN-TRIAMCINOLONE [Concomitant]
  21. PROMETHAZINE-DM [Concomitant]
  22. AMLODIPINE/VALSARTAN [Suspect]
     Active Substance: AMLODIPINE\VALSARTAN
     Indication: HYPERTENSION
     Dosage: 5MG/320MG,?1 DAILY?1 DAILY?BY MOUTH
     Route: 048
     Dates: end: 20150829
  23. CALCIUM 500-VIT D [Concomitant]
  24. MELOXICAM. [Concomitant]
     Active Substance: MELOXICAM
  25. CVS GAS RELIEF [Concomitant]

REACTIONS (2)
  - Product substitution issue [None]
  - Oedema peripheral [None]

NARRATIVE: CASE EVENT DATE: 20140911
